FAERS Safety Report 4587309-6 (Version None)
Quarter: 2005Q1

REPORT INFORMATION
  Report Type: 
  Country: None (occurrence: None)
  Receive Date: 20050215
  Receipt Date: 20050105
  Transmission Date: 20050727
  Serious: Yes (Disabling)
  Sender: FDA-Public Use
  Company Number: 2005SE00075

PATIENT
  Age: 42 Year
  Sex: Female

DRUGS (4)
  1. BLOPRESS [Suspect]
  2. ADECUT [Suspect]
     Indication: HYPERTENSION
     Dosage: 30 MG QD
     Dates: start: 20040417, end: 20040826
  3. MINIPRESS [Suspect]
  4. ALDACTONE-A [Suspect]

REACTIONS (1)
  - RHABDOMYOLYSIS [None]
